FAERS Safety Report 24645741 (Version 1)
Quarter: 2024Q4

REPORT INFORMATION
  Report Type: Spontaneous
  Country: US (occurrence: US)
  Receive Date: 20241121
  Receipt Date: 20241121
  Transmission Date: 20250114
  Serious: No
  Sender: BLUEPRINT MEDICINES
  Company Number: US-Blueprint Medicines Corporation-5393

PATIENT
  Age: 65 Year
  Sex: Female

DRUGS (2)
  1. AYVAKIT [Suspect]
     Active Substance: AVAPRITINIB
     Indication: Product used for unknown indication
     Dosage: TOTAL 75 MG ONCE DAILY
     Route: 048
  2. AYVAKIT [Suspect]
     Active Substance: AVAPRITINIB
     Dosage: TOTAL 75 MG ONCE DAILY
     Route: 048

REACTIONS (6)
  - Sinusitis [Recovering/Resolving]
  - Paranasal sinus discomfort [Recovering/Resolving]
  - Sinus congestion [Recovering/Resolving]
  - Cough [Recovering/Resolving]
  - Head discomfort [Recovering/Resolving]
  - Throat irritation [Recovering/Resolving]
